FAERS Safety Report 4932916-1 (Version None)
Quarter: 2006Q1

REPORT INFORMATION
  Report Type: 
  Country: None (occurrence: None)
  Receive Date: 20060302
  Receipt Date: 20060302
  Transmission Date: 20060701
  Serious: Yes (Death, Hospitalization)
  Sender: FDA-Public Use
  Company Number: None

PATIENT
  Age: 80 Year
  Sex: Male
  Weight: 88.905 kg

DRUGS (4)
  1. CEFUROXIME [Suspect]
     Indication: CHRONIC OBSTRUCTIVE PULMONARY DISEASE
     Dosage: 250 MG BID PO
     Route: 048
     Dates: start: 20060125, end: 20060130
  2. CEFUROXIME [Suspect]
     Indication: CONDITION AGGRAVATED
     Dosage: 250 MG BID PO
     Route: 048
     Dates: start: 20060125, end: 20060130
  3. AZITHROMYCIN [Suspect]
     Indication: CHRONIC OBSTRUCTIVE PULMONARY DISEASE
     Dosage: 250 MG DAILY PO
     Route: 048
     Dates: start: 20060119, end: 20060124
  4. AZITHROMYCIN [Suspect]
     Indication: CONDITION AGGRAVATED
     Dosage: 250 MG DAILY PO
     Route: 048
     Dates: start: 20060119, end: 20060124

REACTIONS (2)
  - CLOSTRIDIUM COLITIS [None]
  - RESPIRATORY FAILURE [None]
